FAERS Safety Report 7386734-8 (Version None)
Quarter: 2011Q1

REPORT INFORMATION
  Report Type: 
  Country: None (occurrence: None)
  Receive Date: 20110323
  Receipt Date: 20110307
  Transmission Date: 20110831
  Serious: Yes (Other)
  Sender: FDA-Public Use
  Company Number: JP-ACCORD-008543

PATIENT
  Age: 78 Year
  Sex: Female

DRUGS (2)
  1. ANASTROZOLE [Suspect]
     Indication: BREAST CANCER
     Dosage: 1.00-MG-1.00 TIMES PER-1.0DAYS
  2. UFT(UFT) [Concomitant]

REACTIONS (2)
  - BREAST CANCER METASTATIC [None]
  - BREAST CANCER RECURRENT [None]
